FAERS Safety Report 4550606-4 (Version None)
Quarter: 2004Q4

REPORT INFORMATION
  Report Type: 
  Country: None (occurrence: None)
  Receive Date: 20041227
  Receipt Date: 20040922
  Transmission Date: 20050328
  Serious: No
  Sender: FDA-Public Use
  Company Number: 04P-163-0274082-00

PATIENT
  Age: 60 Year
  Sex: Male
  Weight: 95.2554 kg

DRUGS (15)
  1. HUMIRA [Suspect]
     Indication: RHEUMATOID ARTHRITIS
     Dosage: 40 MG, 1 IN 2 WK, SUBCUTANEOUS
     Route: 058
     Dates: start: 20040801
  2. LEFLUNOMIDE [Concomitant]
  3. METHOTREXATE [Concomitant]
  4. HYDROXYCHLOROQUINE SULFATE [Concomitant]
  5. GLUCOPHAGE [Concomitant]
  6. GABAPENTIN [Concomitant]
  7. SINGULAIR [Concomitant]
  8. SINGULAIR [Concomitant]
  9. BUCINDOLOL HYDROCHLORIDE [Concomitant]
  10. FOLIC ACID [Concomitant]
  11. ATORVASTATIN [Concomitant]
  12. HYDROCHLOROTHIAZIDE [Concomitant]
  13. SERTRALINE HYDROCHLORIDE [Concomitant]
  14. LANSOPRAZOLE [Concomitant]
  15. LEVOTHYROXINE SODIUM [Concomitant]

REACTIONS (2)
  - DRUG INEFFECTIVE [None]
  - INJECTION SITE BURNING [None]
